FAERS Safety Report 10271036 (Version 1)
Quarter: 2014Q1

REPORT INFORMATION
  Report Type: Spontaneous
  Country: US (occurrence: None)
  Receive Date: 20140306
  Receipt Date: 20140306
  Transmission Date: 20141002
  Serious: Yes (Other)
  Sender: FDA-Public Use
  Company Number: 163-21880-13082601

PATIENT
  Age: 59 Year
  Sex: Male
  Weight: 72.6 kg

DRUGS (10)
  1. REVLIMID (LENALIDOMIDE) (25 MILLIGRAM, CAPSULES) [Suspect]
     Indication: PLASMA CELL MYELOMA
     Route: 048
     Dates: start: 20110208
  2. ZOCOR (SIMVASTATIN) (TABLETS) [Concomitant]
  3. DEXAMETHASONE (DEXAMETHASONE) (TABLETS) [Concomitant]
  4. ASPIRIN (ACETYLSALICYLIC ACID) (CHEWABLE TABLET) [Concomitant]
  5. LISINOPRIL (LISINOPRIL) (TABLETS) [Concomitant]
  6. METOPROLOL TARTRATE (METOPROLOL TARTRATE) (TABLETS) (METOPROLOL TARTRATE) [Concomitant]
  7. OXYCODONE HCL (OXYCODONE HYDROCHLORIDE) (TABLETS) [Concomitant]
  8. PLAVIX (CLOPIDOGREL SULFATE) (TABLETS) [Concomitant]
  9. CALCIUM 600 PLUS VITAMIN D3 (CALCIUM D3 ^STADA^) [Concomitant]
  10. FLEXERIL (CYCLOBENZAPRINE HYDROCHLORIDE) (TABLETS) [Concomitant]

REACTIONS (1)
  - Localised infection [None]
